FAERS Safety Report 11400931 (Version 3)
Quarter: 2015Q3

REPORT INFORMATION
  Report Type: Spontaneous
  Country: US (occurrence: US)
  Receive Date: 20150820
  Receipt Date: 20150911
  Transmission Date: 20151125
  Serious: Yes (Other)
  Sender: FDA-Public Use
  Company Number: US-ASTRAZENECA-2015SE80132

PATIENT
  Age: 62 Year
  Sex: Female
  Weight: 76.4 kg

DRUGS (12)
  1. TAXOTERE [Suspect]
     Active Substance: DOCETAXEL
     Indication: OESTROGEN RECEPTOR POSITIVE BREAST CANCER
     Route: 065
     Dates: start: 200804, end: 200809
  2. XARELTO [Concomitant]
     Active Substance: RIVAROXABAN
  3. XELODA [Suspect]
     Active Substance: CAPECITABINE
     Indication: OESTROGEN RECEPTOR POSITIVE BREAST CANCER
     Route: 065
     Dates: start: 200804, end: 200809
  4. AVASTIN [Suspect]
     Active Substance: BEVACIZUMAB
     Indication: OESTROGEN RECEPTOR POSITIVE BREAST CANCER
     Route: 065
     Dates: start: 200804, end: 200809
  5. ADRIAMYCIN [Suspect]
     Active Substance: DOXORUBICIN HYDROCHLORIDE
     Indication: OESTROGEN RECEPTOR POSITIVE BREAST CANCER
     Route: 065
     Dates: start: 200804, end: 200809
  6. HERCEPTIN [Suspect]
     Active Substance: TRASTUZUMAB
     Indication: METASTASES TO CENTRAL NERVOUS SYSTEM
     Route: 065
     Dates: start: 200812, end: 201012
  7. FEMARA [Suspect]
     Active Substance: LETROZOLE
     Indication: ADJUVANT THERAPY
     Route: 065
     Dates: start: 200812, end: 201308
  8. AROMASIN [Suspect]
     Active Substance: EXEMESTANE
     Indication: PALLIATIVE CARE
     Route: 065
     Dates: start: 201308, end: 201412
  9. FASLODEX [Suspect]
     Active Substance: FULVESTRANT
     Indication: PALLIATIVE CARE
     Route: 030
     Dates: start: 20141212, end: 201507
  10. XGEVA [Suspect]
     Active Substance: DENOSUMAB
     Indication: PALLIATIVE CARE
     Route: 065
     Dates: start: 20130815
  11. CYTOXAN [Suspect]
     Active Substance: CYCLOPHOSPHAMIDE
     Indication: OESTROGEN RECEPTOR POSITIVE BREAST CANCER
     Route: 065
     Dates: start: 200804, end: 200809
  12. HERCEPTIN [Suspect]
     Active Substance: TRASTUZUMAB
     Indication: ADJUVANT THERAPY
     Route: 065
     Dates: start: 200812, end: 201012

REACTIONS (10)
  - Breast cancer metastatic [Unknown]
  - Metastases to liver [Unknown]
  - Metastases to central nervous system [Unknown]
  - Decreased activity [Unknown]
  - Fatigue [Unknown]
  - Clavicle fracture [Unknown]
  - Tooth disorder [Unknown]
  - HER-2 positive breast cancer [Unknown]
  - Metastases to bone [Unknown]
  - Headache [Unknown]

NARRATIVE: CASE EVENT DATE: 2008
